FAERS Safety Report 4832491-6 (Version None)
Quarter: 2005Q4

REPORT INFORMATION
  Report Type: 
  Country: None (occurrence: None)
  Receive Date: 20051117
  Receipt Date: 20051104
  Transmission Date: 20060501
  Serious: Yes (Hospitalization)
  Sender: FDA-Public Use
  Company Number: 05-0134PO

PATIENT
  Age: 76 Year
  Sex: Male

DRUGS (6)
  1. MEFENAMIC ACID [Suspect]
     Indication: ARTHRITIS
  2. CELEBREX [Suspect]
     Indication: ARTHRITIS
     Dosage: 200 MG
  3. BEXTRA [Suspect]
     Indication: ARTHRITIS
     Dosage: 20 MG
  4. ACETAMINOPHEN AND OXYCODONE HCL [Suspect]
     Indication: ARTHRITIS
  5. EXTRA STRENGTH TYLENOL [Suspect]
     Indication: ARTHRITIS
  6. ACETAMINOPHEN AND HYDROCODONE BITARTRATE [Suspect]
     Indication: ARTHRITIS
     Dates: end: 20051001

REACTIONS (11)
  - ARTHRALGIA [None]
  - CONSTIPATION [None]
  - EROSIVE DUODENITIS [None]
  - GASTROINTESTINAL DISORDER [None]
  - HYPERSOMNIA [None]
  - INSOMNIA [None]
  - MOBILITY DECREASED [None]
  - MYALGIA [None]
  - PEPTIC ULCER HAEMORRHAGE [None]
  - PHARMACEUTICAL PRODUCT COMPLAINT [None]
  - POOR QUALITY DRUG ADMINISTERED [None]
